FAERS Safety Report 17819321 (Version 1)
Quarter: 2020Q2

REPORT INFORMATION
  Report Type: Spontaneous
  Country: US (occurrence: US)
  Receive Date: 20200523
  Receipt Date: 20200523
  Transmission Date: 20200714
  Serious: Yes (Other)
  Sender: FDA-Public Use
  Company Number: US-TEVA-2020-US-1238397

PATIENT
  Age: 57 Year
  Sex: Female

DRUGS (3)
  1. TRAMADOL HYDROCHLORIDE TEVA [Suspect]
     Active Substance: TRAMADOL HYDROCHLORIDE
     Indication: OSTEOARTHRITIS
     Route: 065
  2. TRAMADOL HYDROCHLORIDE TEVA [Suspect]
     Active Substance: TRAMADOL HYDROCHLORIDE
     Indication: SCOLIOSIS
  3. TRAZODONE HYDROCHLORIDE. [Suspect]
     Active Substance: TRAZODONE HYDROCHLORIDE
     Dosage: ONE OR TWO TABLETS UP TO FOUR TIMES PER DAY
     Route: 065

REACTIONS (28)
  - Angina pectoris [Unknown]
  - Adverse event [Not Recovered/Not Resolved]
  - Uterine atrophy [Unknown]
  - Burn of internal organs [Recovering/Resolving]
  - Hiatus hernia [Unknown]
  - Bone development abnormal [Not Recovered/Not Resolved]
  - Blindness [Unknown]
  - Personality disorder [Not Recovered/Not Resolved]
  - Frustration tolerance decreased [Unknown]
  - Adverse event [Unknown]
  - Skin exfoliation [Unknown]
  - Wrong product administered [Unknown]
  - Dysarthria [Not Recovered/Not Resolved]
  - Fear [Unknown]
  - Loss of consciousness [Not Recovered/Not Resolved]
  - Nephrolithiasis [Unknown]
  - Somnambulism [Not Recovered/Not Resolved]
  - Depression [Unknown]
  - Feeling abnormal [Unknown]
  - Product dispensing error [Unknown]
  - Cardiac disorder [Unknown]
  - Haemorrhagic diathesis [Unknown]
  - Serotonin syndrome [Unknown]
  - Heart rate increased [Not Recovered/Not Resolved]
  - Sleep disorder [Unknown]
  - Renal disorder [Unknown]
  - Drug detoxification [Unknown]
  - Serum serotonin increased [Unknown]
